FAERS Safety Report 8929212 (Version 1)
Quarter: 2012Q4

REPORT INFORMATION
  Report Type: 
  Country: US (occurrence: None)
  Receive Date: 20121126
  Receipt Date: 20121126
  Transmission Date: 20130627
  Serious: No
  Sender: FDA-Public Use
  Company Number: None

PATIENT
  Age: 81 Year
  Sex: Female
  Weight: 57.61 kg

DRUGS (1)
  1. PROLIA INJECTION-AMGEN [Suspect]
     Indication: OSTEOPOROSIS
     Dosage: injection
     Route: 051
     Dates: start: 20120627

REACTIONS (5)
  - Stress fracture [None]
  - Arthralgia [None]
  - Arthralgia [None]
  - Musculoskeletal pain [None]
  - Cardio-respiratory arrest [None]
